FAERS Safety Report 5565306-1 (Version None)
Quarter: 2007Q4

REPORT INFORMATION
  Report Type: 
  Country: None (occurrence: None)
  Receive Date: 20071218
  Receipt Date: 20030226
  Transmission Date: 20080405
  Serious: Yes (Death, Life-Threatening)
  Sender: FDA-Public Use
  Company Number: JP-ROCHE-331063

PATIENT
  Age: 88 Year
  Sex: Female
  Weight: 37 kg

DRUGS (10)
  1. TAMIFLU [Suspect]
     Route: 048
     Dates: start: 20030130, end: 20030131
  2. CLARITHROMYCIN [Concomitant]
     Route: 048
     Dates: start: 20030130, end: 20030131
  3. CALONAL [Concomitant]
     Route: 048
     Dates: start: 20030130, end: 20030131
  4. HUSTAZOL [Concomitant]
     Indication: COUGH
     Route: 048
     Dates: start: 20030130, end: 20030131
  5. CORINAEL-L [Concomitant]
     Indication: HYPERTENSION
     Route: 048
     Dates: start: 20010514, end: 20030131
  6. METOPROLOL TARTRATE [Concomitant]
     Indication: HYPERTENSION
     Route: 048
     Dates: start: 20010514, end: 20030131
  7. D-ALFA [Concomitant]
     Indication: OSTEOPOROSIS
     Route: 048
     Dates: start: 20010514, end: 20030131
  8. CEREKINON [Concomitant]
     Indication: FLATULENCE
     Route: 048
     Dates: start: 20010514, end: 20030131
  9. GEFANIL [Concomitant]
     Route: 048
     Dates: start: 20010514, end: 20030131
  10. FAMOTIDINE [Concomitant]
     Route: 048
     Dates: start: 20010514, end: 20030131

REACTIONS (3)
  - CARDIAC TAMPONADE [None]
  - LACUNAR INFARCTION [None]
  - LUNG DISORDER [None]
